FAERS Safety Report 19139757 (Version 1)
Quarter: 2021Q2

REPORT INFORMATION
  Report Type: Spontaneous
  Country: US (occurrence: US)
  Receive Date: 20210415
  Receipt Date: 20210415
  Transmission Date: 20210717
  Serious: No
  Sender: FDA-Public Use
  Company Number: US-GLAXOSMITHKLINE-US2021AMR082833

PATIENT
  Sex: Male

DRUGS (1)
  1. ALBUTEROL SULFATE. [Suspect]
     Active Substance: ALBUTEROL SULFATE
     Indication: TOBACCO USER
     Dosage: UNK, 90 MCG, 18G/200 METERED

REACTIONS (3)
  - Product use in unapproved indication [Unknown]
  - Device use error [Unknown]
  - Wrong technique in product usage process [Unknown]
